FAERS Safety Report 23569997 (Version 2)
Quarter: 2024Q3

REPORT INFORMATION
  Report Type: Spontaneous
  Country: US (occurrence: US)
  Receive Date: 20240227
  Receipt Date: 20240923
  Transmission Date: 20241016
  Serious: Yes (Other)
  Sender: MYLAN
  Company Number: US-MYLANLABS-2024M1017707

PATIENT
  Age: 64 Year
  Sex: Male

DRUGS (11)
  1. METOPROLOL [Interacting]
     Active Substance: METOPROLOL
     Indication: Heart failure with reduced ejection fraction
     Dosage: 12.5 MILLIGRAM, QD
     Route: 065
  2. METOPROLOL [Interacting]
     Active Substance: METOPROLOL
     Indication: Cardiac failure chronic
  3. TORSEMIDE [Interacting]
     Active Substance: TORSEMIDE
     Indication: Heart failure with reduced ejection fraction
     Dosage: 50 MILLIGRAM, BID
     Route: 065
  4. TORSEMIDE [Interacting]
     Active Substance: TORSEMIDE
     Indication: Cardiac failure chronic
     Dosage: 50 MILLIGRAM, QD
     Route: 065
  5. SPIRONOLACTONE [Interacting]
     Active Substance: SPIRONOLACTONE
     Indication: Cardiac failure chronic
     Dosage: UNK
     Route: 065
  6. SACUBITRIL\VALSARTAN [Interacting]
     Active Substance: SACUBITRIL\VALSARTAN
     Indication: Heart failure with reduced ejection fraction
     Dosage: UNK UNK, BID
     Route: 065
  7. SACUBITRIL\VALSARTAN [Interacting]
     Active Substance: SACUBITRIL\VALSARTAN
     Indication: Cardiac failure chronic
     Dosage: UNK UNK (DOSE DECREASED)
     Route: 065
  8. TIRZEPATIDE [Interacting]
     Active Substance: TIRZEPATIDE
     Indication: Type 2 diabetes mellitus
     Dosage: 10 MILLIGRAM, QW (GRADUALLY TITRATED TO 12.5MG ONCE WEEKLY)
     Route: 065
  9. TIRZEPATIDE [Interacting]
     Active Substance: TIRZEPATIDE
     Indication: Weight decreased
     Dosage: 12.5 MILLIGRAM, QW
     Route: 065
  10. EMPAGLIFLOZIN [Interacting]
     Active Substance: EMPAGLIFLOZIN
     Indication: Type 2 diabetes mellitus
     Dosage: UNK
     Route: 065
  11. SEMAGLUTIDE [Interacting]
     Active Substance: SEMAGLUTIDE
     Indication: Type 2 diabetes mellitus
     Dosage: 2 MILLIGRAM, QW
     Route: 065

REACTIONS (2)
  - Drug interaction [Recovering/Resolving]
  - Hypotension [Recovering/Resolving]
